FAERS Safety Report 15292934 (Version 1)
Quarter: 2018Q3

REPORT INFORMATION
  Report Type: Spontaneous
  Country: US (occurrence: US)
  Receive Date: 20180806
  Receipt Date: 20180806
  Transmission Date: 20181010
  Serious: Yes (Other)
  Sender: FDA-Public Use
  Company Number: None

PATIENT
  Age: 70 Year
  Sex: Female
  Weight: 48.15 kg

DRUGS (14)
  1. CAPECITABINE. [Suspect]
     Active Substance: CAPECITABINE
     Indication: BREAST CANCER
     Route: 048
     Dates: start: 20180709
  2. TURMERIC [Concomitant]
     Active Substance: HERBALS\TURMERIC
  3. HYDROCODONE?APAP [Concomitant]
     Active Substance: ACETAMINOPHEN\HYDROCODONE
  4. VITAMIN E [Concomitant]
     Active Substance: .ALPHA.-TOCOPHEROL
  5. MULTIVITAMINS [Concomitant]
     Active Substance: VITAMINS
  6. OMEGA 3 [Concomitant]
     Active Substance: OMEGA-3 FATTY ACIDS
  7. CALCIUM [Concomitant]
     Active Substance: CALCIUM
  8. PROBIOTICS [Concomitant]
     Active Substance: PROBIOTICS NOS
  9. VITAMIN A [Concomitant]
     Active Substance: VITAMIN A
  10. VITAMIN B12 [Concomitant]
     Active Substance: CYANOCOBALAMIN
  11. FLAXSEED [Concomitant]
     Active Substance: FLAX SEED
  12. COQ10 [Concomitant]
     Active Substance: UBIDECARENONE
  13. MAGNESIUM [Concomitant]
     Active Substance: MAGNESIUM
  14. IBUPROFEN. [Concomitant]
     Active Substance: IBUPROFEN

REACTIONS (1)
  - Post procedural infection [None]
